FAERS Safety Report 19510316 (Version 3)
Quarter: 2021Q3

REPORT INFORMATION
  Report Type: Spontaneous
  Country: US (occurrence: US)
  Receive Date: 20210709
  Receipt Date: 20210728
  Transmission Date: 20211014
  Serious: Yes (Hospitalization, Other)
  Sender: FDA-Public Use
  Company Number: US-APOTEX-2021AP015086

PATIENT
  Sex: Male

DRUGS (1)
  1. METFORMIN [Suspect]
     Active Substance: METFORMIN HYDROCHLORIDE
     Indication: DIABETES MELLITUS
     Dosage: UNK
     Route: 065
     Dates: start: 2013

REACTIONS (6)
  - Back pain [Unknown]
  - Hyperhidrosis [Recovered/Resolved]
  - Recalled product administered [Unknown]
  - Palpitations [Recovered/Resolved]
  - Renal failure [Not Recovered/Not Resolved]
  - Dyspnoea [Unknown]
